FAERS Safety Report 8592221-1 (Version None)
Quarter: 2012Q3

REPORT INFORMATION
  Report Type: 
  Country: None (occurrence: None)
  Receive Date: 20120814
  Receipt Date: 20120808
  Transmission Date: 20120928
  Serious: Yes (Life-Threatening)
  Sender: FDA-Public Use
  Company Number: US-SANOFI-AVENTIS-2012SA057689

PATIENT
  Sex: Male

DRUGS (4)
  1. BEVACIZUMAB [Suspect]
     Route: 042
  2. DEXAMETHASONE [Concomitant]
     Indication: PREMEDICATION
     Dosage: ADMINISTERED 12, 3 AND 1 HOUR BEFORE THE ADMINISTRATION OF DOCETAXEL
     Route: 048
  3. PREDNISONE TAB [Suspect]
     Dosage: STARTED ON DAY 1 OF EVERY CYCLE
     Route: 048
  4. DOCETAXEL [Suspect]
     Dosage: ADMINISTERED ON DAY 1, OF EVERY CYCLE
     Route: 042

REACTIONS (1)
  - CEREBRAL ISCHAEMIA [None]
